FAERS Safety Report 14475537 (Version 2)
Quarter: 2018Q1

REPORT INFORMATION
  Report Type: Spontaneous
  Country: US (occurrence: US)
  Receive Date: 20180201
  Receipt Date: 20180321
  Transmission Date: 20180509
  Serious: Yes (Other)
  Sender: FDA-Public Use
  Company Number: US-SA-2018SA020141

PATIENT
  Age: 67 Year
  Sex: Male

DRUGS (9)
  1. XTANDI [Suspect]
     Active Substance: ENZALUTAMIDE
     Indication: PROSTATE CANCER
     Dosage: STARTED ON 04-MAY-2017 (ALSO REPORTED 05-MAY-2017)
     Route: 048
  2. XTANDI [Suspect]
     Active Substance: ENZALUTAMIDE
     Indication: PROSTATE CANCER
     Dosage: STARTED ON 04-MAY-2017 (ALSO REPORTED 05-MAY-2017)
     Route: 048
  3. SANCTURA [Concomitant]
     Active Substance: TROSPIUM CHLORIDE
  4. XTANDI [Suspect]
     Active Substance: ENZALUTAMIDE
     Indication: PROSTATE CANCER
     Dosage: STARTED ON 04-MAY-2017 (ALSO REPORTED 05-MAY-2017)
     Route: 048
  5. TAMSULOSIN [Concomitant]
     Active Substance: TAMSULOSIN
  6. TAXOTERE [Suspect]
     Active Substance: DOCETAXEL
     Route: 042
  7. LISINOPRIL. [Concomitant]
     Active Substance: LISINOPRIL
  8. ZYRTEC [Concomitant]
     Active Substance: CETIRIZINE HYDROCHLORIDE
  9. XTANDI [Suspect]
     Active Substance: ENZALUTAMIDE
     Indication: PROSTATE CANCER
     Dosage: STARTED ON 04-MAY-2017 (ALSO REPORTED 05-MAY-2017)
     Route: 048

REACTIONS (22)
  - Psoriasis [Unknown]
  - Hypotonia [Not Recovered/Not Resolved]
  - Neuropathy peripheral [Unknown]
  - Insomnia [Unknown]
  - Pain in extremity [Not Recovered/Not Resolved]
  - Grip strength decreased [Recovering/Resolving]
  - Prostatic specific antigen increased [Not Recovered/Not Resolved]
  - Musculoskeletal pain [Not Recovered/Not Resolved]
  - Hypertension [Recovered/Resolved]
  - Nocturia [Not Recovered/Not Resolved]
  - Pruritus [Unknown]
  - Fall [Unknown]
  - Pelvic pain [Not Recovered/Not Resolved]
  - Arthralgia [Recovering/Resolving]
  - Balance disorder [Not Recovered/Not Resolved]
  - Fatigue [Unknown]
  - Injury [Recovering/Resolving]
  - Skin abrasion [Recovered/Resolved]
  - Back pain [Not Recovered/Not Resolved]
  - Renal impairment [Not Recovered/Not Resolved]
  - Muscle strain [Not Recovered/Not Resolved]
  - Myalgia [Not Recovered/Not Resolved]

NARRATIVE: CASE EVENT DATE: 201705
